FAERS Safety Report 9419745 (Version 1)
Quarter: 2013Q3

REPORT INFORMATION
  Report Type: Spontaneous
  Country: US (occurrence: US)
  Receive Date: 20130725
  Receipt Date: 20130725
  Transmission Date: 20140515
  Serious: Yes (Disabling)
  Sender: FDA-Public Use
  Company Number: US-PFIZER INC-2013216013

PATIENT
  Age: 61 Year
  Sex: Female
  Weight: 89.34 kg

DRUGS (5)
  1. FAMOTIDINE [Suspect]
     Indication: URTICARIA
     Dosage: 40 MG, DAILY
     Dates: start: 20130411
  2. VENLAFAXINE ER [Suspect]
     Dosage: 112.5 MG DAILY
     Dates: start: 20130204, end: 20130605
  3. HYDROXYZINE HYDROCHLORIDE [Suspect]
     Indication: PRURITUS
     Dosage: 25 TO 50 MG, IN THE EVENING, AS NEEDED (HS PRN)
     Dates: start: 20130411
  4. CETIRIZINE HYDROCHLORIDE [Suspect]
     Indication: URTICARIA
     Dosage: 10 MG, 1X/DAY
     Route: 048
     Dates: start: 20130411
  5. MELATONIN [Concomitant]
     Dosage: 2 TO 5 MG AT BEDTIME

REACTIONS (2)
  - Drug ineffective [Not Recovered/Not Resolved]
  - Abasia [Not Recovered/Not Resolved]
